FAERS Safety Report 19004428 (Version 3)
Quarter: 2023Q4

REPORT INFORMATION
  Report Type: Spontaneous
  Country: US (occurrence: US)
  Receive Date: 20210312
  Receipt Date: 20231016
  Transmission Date: 20240110
  Serious: Yes (Other)
  Sender: FDA-Public Use
  Company Number: US-GILEAD-2021-0519923

PATIENT
  Age: 58 Year
  Sex: Male
  Weight: 96.145 kg

DRUGS (60)
  1. VIREAD [Suspect]
     Active Substance: TENOFOVIR DISOPROXIL FUMARATE
     Indication: HIV infection
     Dosage: UNK
     Route: 048
     Dates: start: 2009
  2. VIREAD [Suspect]
     Active Substance: TENOFOVIR DISOPROXIL FUMARATE
     Dosage: UNK
     Route: 048
     Dates: start: 20050901, end: 20160801
  3. DESCOVY [Concomitant]
     Active Substance: EMTRICITABINE\TENOFOVIR ALAFENAMIDE FUMARATE
  4. ISENTRESS [Concomitant]
     Active Substance: RALTEGRAVIR POTASSIUM
  5. NORVIR [Concomitant]
     Active Substance: RITONAVIR
  6. PREZISTA [Concomitant]
     Active Substance: DARUNAVIR ETHANOLATE
  7. REYATAZ [Concomitant]
     Active Substance: ATAZANAVIR SULFATE
  8. TIVICAY [Concomitant]
     Active Substance: DOLUTEGRAVIR SODIUM
  9. EPZICOM [Concomitant]
     Active Substance: ABACAVIR SULFATE\LAMIVUDINE
  10. ALBUTEROL [Concomitant]
     Active Substance: ALBUTEROL
  11. ALBUTEROL SULFATE [Concomitant]
     Active Substance: ALBUTEROL SULFATE
  12. METFORMIN [Concomitant]
     Active Substance: METFORMIN HYDROCHLORIDE
  13. CYMBALTA [Concomitant]
     Active Substance: DULOXETINE HYDROCHLORIDE
  14. METOPROLOL [Concomitant]
     Active Substance: METOPROLOL
  15. ATORVASTATIN [Concomitant]
     Active Substance: ATORVASTATIN
  16. LOSARTAN [Concomitant]
     Active Substance: LOSARTAN
  17. ATENOLOL [Concomitant]
     Active Substance: ATENOLOL
  18. AZITHROMYCIN [Concomitant]
     Active Substance: AZITHROMYCIN
  19. BUPROPION [Concomitant]
     Active Substance: BUPROPION
  20. CHANTIX [Concomitant]
     Active Substance: VARENICLINE TARTRATE
  21. CLONAZEPAM [Concomitant]
     Active Substance: CLONAZEPAM
  22. DIAZEPAM [Concomitant]
     Active Substance: DIAZEPAM
  23. DIOVAN [Concomitant]
     Active Substance: VALSARTAN
  24. DIPHENOXYLATE [Concomitant]
     Active Substance: DIPHENOXYLATE
  25. ESCITALOPRAM [Concomitant]
     Active Substance: ESCITALOPRAM OXALATE
  26. FAMOTIDINE [Concomitant]
     Active Substance: FAMOTIDINE
  27. FLOVENT [Concomitant]
     Active Substance: FLUTICASONE PROPIONATE
  28. GABAPENTIN [Concomitant]
     Active Substance: GABAPENTIN
  29. HYDROCHLOROTHIAZIDE [Concomitant]
     Active Substance: HYDROCHLOROTHIAZIDE
  30. HYDROCODONE [Concomitant]
     Active Substance: HYDROCODONE
  31. IBUPROFEN [Concomitant]
     Active Substance: IBUPROFEN
  32. LISINOPRIL [Concomitant]
     Active Substance: LISINOPRIL
  33. LOPERAMIDE [Concomitant]
     Active Substance: LOPERAMIDE
  34. LORAZEPAM [Concomitant]
     Active Substance: LORAZEPAM
  35. MECLIZINE [Concomitant]
     Active Substance: MECLIZINE HYDROCHLORIDE
  36. NAPROXEN [Concomitant]
     Active Substance: NAPROXEN
  37. NEOPOLYDEX [Concomitant]
  38. ONDANSETRON [Concomitant]
     Active Substance: ONDANSETRON
  39. OXYCODONE [Concomitant]
     Active Substance: OXYCODONE
  40. POLYETHYLENE GLYCOL 3350 [Concomitant]
     Active Substance: POLYETHYLENE GLYCOL 3350
  41. PENICILLIN [Concomitant]
     Active Substance: PENICILLIN
  42. PREDNISONE [Concomitant]
     Active Substance: PREDNISONE
  43. PROAIR HFA [Concomitant]
     Active Substance: ALBUTEROL SULFATE
  44. PROMETHAZINE [Concomitant]
     Active Substance: PROMETHAZINE HYDROCHLORIDE
  45. PROPRANOLOL [Concomitant]
     Active Substance: PROPRANOLOL HYDROCHLORIDE
  46. PROVENTIL [Concomitant]
     Active Substance: ALBUTEROL
  47. QUETIAPINE [Concomitant]
     Active Substance: QUETIAPINE
  48. RANITIDINE [Concomitant]
     Active Substance: RANITIDINE
  49. ROBAFEN [GUAIFENESIN] [Concomitant]
  50. ROPINIROLE [Concomitant]
     Active Substance: ROPINIROLE
  51. SPIRIVA [Concomitant]
     Active Substance: TIOTROPIUM BROMIDE MONOHYDRATE
  52. STIOLTO RESPIMAT [Concomitant]
     Active Substance: OLODATEROL HYDROCHLORIDE\TIOTROPIUM BROMIDE MONOHYDRATE
  53. TAMSULOSIN [Concomitant]
     Active Substance: TAMSULOSIN
  54. TEMAZEPAM [Concomitant]
     Active Substance: TEMAZEPAM
  55. TERAZOSIN [Concomitant]
     Active Substance: TERAZOSIN HYDROCHLORIDE
  56. TRAMADOL [Concomitant]
     Active Substance: TRAMADOL\TRAMADOL HYDROCHLORIDE
  57. TRAZODONE [Concomitant]
     Active Substance: TRAZODONE HYDROCHLORIDE
  58. VENLAFAXINE [Concomitant]
     Active Substance: VENLAFAXINE HYDROCHLORIDE
  59. VIAGRA [Concomitant]
     Active Substance: SILDENAFIL CITRATE
  60. VIRTUSSIN AC [Concomitant]
     Active Substance: CODEINE PHOSPHATE\GUAIFENESIN

REACTIONS (8)
  - Osteoporosis [Not Recovered/Not Resolved]
  - Chronic kidney disease [Not Recovered/Not Resolved]
  - Emotional distress [Not Recovered/Not Resolved]
  - Anxiety [Not Recovered/Not Resolved]
  - Anhedonia [Not Recovered/Not Resolved]
  - Bone density decreased [Unknown]
  - Pain [Not Recovered/Not Resolved]
  - Gait disturbance [Not Recovered/Not Resolved]

NARRATIVE: CASE EVENT DATE: 20140828
